FAERS Safety Report 8063573-6 (Version None)
Quarter: 2012Q1

REPORT INFORMATION
  Report Type: 
  Country: None (occurrence: None)
  Receive Date: 20120123
  Receipt Date: 20120112
  Transmission Date: 20120608
  Serious: Yes (Hospitalization)
  Sender: FDA-Public Use
  Company Number: US-BAYER-2011-069321

PATIENT
  Age: 43 Year
  Sex: Female
  Weight: 79 kg

DRUGS (6)
  1. YAZ [Suspect]
  2. YAZ [Suspect]
     Dosage: 1 DF, QD
     Route: 048
     Dates: start: 20060601, end: 20091001
  3. YAZ [Suspect]
  4. SPIRIVA [Concomitant]
     Indication: COUGH
     Dosage: UNK
     Dates: start: 20090801, end: 20090901
  5. PRILOSEC [Concomitant]
     Indication: GASTROOESOPHAGEAL REFLUX DISEASE
     Dosage: UNK
     Dates: start: 20091027, end: 20091101
  6. SPIRIVA [Concomitant]
     Indication: ASTHMA

REACTIONS (4)
  - MENTAL DISORDER [None]
  - DEEP VEIN THROMBOSIS [None]
  - PAIN [None]
  - INJURY [None]
